FAERS Safety Report 6368057-9 (Version None)
Quarter: 2009Q3

REPORT INFORMATION
  Report Type: 
  Country: None (occurrence: None)
  Receive Date: 20090922
  Receipt Date: 20090828
  Transmission Date: 20100115
  Serious: No
  Sender: FDA-Public Use
  Company Number: US-ROCHE-653621

PATIENT
  Age: 5 Year
  Sex: Male

DRUGS (1)
  1. TAMIFLU [Suspect]
     Dosage: PATIENT WAS ADMINISTERED 225 MG INSTEAD OF 45 MG
     Route: 048
     Dates: start: 20090827

REACTIONS (2)
  - NO ADVERSE EVENT [None]
  - OVERDOSE [None]
